FAERS Safety Report 25167785 (Version 2)
Quarter: 2025Q2

REPORT INFORMATION
  Report Type: Spontaneous
  Country: US (occurrence: US)
  Receive Date: 20250407
  Receipt Date: 20250505
  Transmission Date: 20250716
  Serious: No
  Sender: PFIZER
  Company Number: US-PFIZER INC-202500070230

PATIENT
  Age: 82 Year
  Sex: Female
  Weight: 64.41 kg

DRUGS (1)
  1. IBRANCE [Suspect]
     Active Substance: PALBOCICLIB
     Indication: Breast cancer female

REACTIONS (4)
  - Rhinorrhoea [Unknown]
  - Epistaxis [Unknown]
  - Rhinitis [Unknown]
  - Off label use [Unknown]
